FAERS Safety Report 4384814-2 (Version None)
Quarter: 2004Q2

REPORT INFORMATION
  Report Type: 
  Country: None (occurrence: None)
  Receive Date: 20040623
  Receipt Date: 20040623
  Transmission Date: 20050107
  Serious: Yes (Death)
  Sender: FDA-Public Use
  Company Number: 03-11-1430

PATIENT
  Age: 64 Year
  Sex: Female
  Weight: 92 kg

DRUGS (1)
  1. CEPHALEXIN [Suspect]

REACTIONS (13)
  - AGITATION [None]
  - ANAPHYLACTIC REACTION [None]
  - AORTIC ATHEROSCLEROSIS [None]
  - BURNING SENSATION [None]
  - CARDIOMEGALY [None]
  - CARDIOPULMONARY FAILURE [None]
  - DILATATION VENTRICULAR [None]
  - MALAISE [None]
  - PARAESTHESIA [None]
  - PULMONARY CONGESTION [None]
  - PULMONARY OEDEMA [None]
  - TRYPTASE [None]
  - VENTRICULAR HYPERTROPHY [None]
